FAERS Safety Report 8286753-3 (Version None)
Quarter: 2012Q2

REPORT INFORMATION
  Report Type: 
  Country: None (occurrence: None)
  Receive Date: 20120416
  Receipt Date: 20120406
  Transmission Date: 20120825
  Serious: No
  Sender: FDA-Public Use
  Company Number: JP-PFIZER INC-2012058638

PATIENT
  Age: 65 Year
  Sex: Male

DRUGS (5)
  1. AZOPT [Concomitant]
     Indication: GLAUCOMA
     Dosage: UNK
     Route: 047
     Dates: end: 20111224
  2. MIKERAN [Concomitant]
     Indication: GLAUCOMA
     Dosage: UNK
     Route: 047
     Dates: end: 20110526
  3. HYALEIN [Concomitant]
     Indication: DRY EYE
     Dosage: UNK
     Route: 047
  4. XALATAN [Suspect]
     Indication: GLAUCOMA
     Dosage: 1 GTT, 1X/DAY
     Route: 047
     Dates: start: 20060104, end: 20110526
  5. LATANOPROST [Suspect]
     Indication: GLAUCOMA
     Dosage: 1 GTT, 1X/DAY
     Route: 047
     Dates: start: 20110527, end: 20111224

REACTIONS (1)
  - HYPOAESTHESIA EYE [None]
